FAERS Safety Report 24452930 (Version 1)
Quarter: 2024Q4

REPORT INFORMATION
  Report Type: Spontaneous
  Country: US (occurrence: US)
  Receive Date: 20241017
  Receipt Date: 20241017
  Transmission Date: 20250115
  Serious: No
  Sender: SUNOVION
  Company Number: US-SMPA-202405-URV-000776AA

PATIENT
  Age: 80 Year
  Sex: Male
  Weight: 79.365 kg

DRUGS (1)
  1. GEMTESA [Suspect]
     Active Substance: VIBEGRON
     Indication: Pollakiuria
     Dosage: UNK, QD, MORNING
     Route: 065

REACTIONS (1)
  - Constipation [Unknown]
